FAERS Safety Report 5908074-3 (Version None)
Quarter: 2008Q4

REPORT INFORMATION
  Report Type: 
  Country: None (occurrence: None)
  Receive Date: 20081003
  Receipt Date: 20080926
  Transmission Date: 20090506
  Serious: Yes (Hospitalization)
  Sender: FDA-Public Use
  Company Number: DE-GENENTECH-268790

PATIENT
  Sex: Female

DRUGS (2)
  1. LUCENTIS [Suspect]
     Indication: MACULAR DEGENERATION
     Dosage: UNK
     Route: 031
  2. AVASTIN [Suspect]
     Indication: MACULAR DEGENERATION
     Dosage: UNK
     Dates: start: 20061114

REACTIONS (1)
  - CEREBROVASCULAR ACCIDENT [None]
